FAERS Safety Report 25212226 (Version 1)
Quarter: 2025Q2

REPORT INFORMATION
  Report Type: Spontaneous
  Country: US (occurrence: US)
  Receive Date: 20250418
  Receipt Date: 20250418
  Transmission Date: 20250717
  Serious: Yes (Death, Hospitalization, Other)
  Sender: NOVITIUM PHARMA
  Company Number: US-NOVITIUMPHARMA-2025USNVP00911

PATIENT
  Age: 83 Year
  Sex: Male

DRUGS (2)
  1. PREDNISONE [Suspect]
     Active Substance: PREDNISONE
     Indication: Rheumatoid arthritis
  2. NOREPINEPHRINE [Concomitant]
     Active Substance: NOREPINEPHRINE
     Indication: Acute respiratory failure

REACTIONS (5)
  - Scedosporium infection [Fatal]
  - Brain abscess [Fatal]
  - Pneumonia necrotising [Fatal]
  - Endophthalmitis [Fatal]
  - Decubitus ulcer [Fatal]
